FAERS Safety Report 5796123-5 (Version None)
Quarter: 2008Q2

REPORT INFORMATION
  Report Type: 
  Country: None (occurrence: None)
  Receive Date: 20080601
  Receipt Date: 20080315
  Transmission Date: 20081010
  Serious: No
  Sender: FDA-Public Use
  Company Number: US200802000559

PATIENT
  Age: 58 Year
  Sex: Female
  Weight: 70.3 kg

DRUGS (8)
  1. BYETTA [Suspect]
     Indication: INSULIN RESISTANT DIABETES
     Dosage: SEE IMAGE
     Route: 058
     Dates: start: 20070401, end: 20070501
  2. BYETTA [Suspect]
     Indication: INSULIN RESISTANT DIABETES
     Dosage: SEE IMAGE
     Route: 058
     Dates: start: 20070501, end: 20071001
  3. BYETTA [Suspect]
     Indication: INSULIN RESISTANT DIABETES
     Dosage: SEE IMAGE
     Route: 058
     Dates: start: 20080101, end: 20080101
  4. BYETTA [Suspect]
     Indication: INSULIN RESISTANT DIABETES
     Dosage: SEE IMAGE
     Route: 058
     Dates: start: 20080101
  5. BYETTA [Suspect]
     Indication: INSULIN RESISTANT DIABETES
     Dosage: SEE IMAGE
     Route: 058
     Dates: start: 20080301
  6. BYETTA [Suspect]
  7. GLUCOPHAGE /USA/ (METFORMIN HYDROCHLORIDE) [Concomitant]
  8. LANTUS [Concomitant]

REACTIONS (6)
  - ABDOMINAL DISTENSION [None]
  - ERUCTATION [None]
  - FLATULENCE [None]
  - GAIT DISTURBANCE [None]
  - NAUSEA [None]
  - VOMITING [None]
